FAERS Safety Report 17604501 (Version 1)
Quarter: 2020Q1

REPORT INFORMATION
  Report Type: Spontaneous
  Country: TR (occurrence: TR)
  Receive Date: 20200331
  Receipt Date: 20200331
  Transmission Date: 20200409
  Serious: Yes (Other)
  Sender: FDA-Public Use
  Company Number: TR-ALKEM LABORATORIES LIMITED-PL-ALKEM-2018-11711

PATIENT
  Age: 28 Year
  Sex: Female

DRUGS (8)
  1. QUETIAPINE FUMARATE. [Suspect]
     Active Substance: QUETIAPINE FUMARATE
     Indication: ANXIETY
     Dosage: 1350 MG, QD
     Route: 065
  2. PAROXETINE. [Concomitant]
     Active Substance: PAROXETINE
     Indication: PANIC DISORDER
     Dosage: UNK
     Route: 065
  3. ALPRAZOLAM. [Concomitant]
     Active Substance: ALPRAZOLAM
     Indication: PANIC DISORDER
     Dosage: UNK
     Route: 065
  4. VITAMIN B COMPLEX [Concomitant]
     Active Substance: CYANOCOBALAMIN\DEXPANTHENOL\NIACINAMIDE\PYRIDOXINE HYDROCHLORIDE\RIBOFLAVIN 5^-PHOSPHATE SODIUM\THIAMINE HYDROCHLORIDE\VITAMIN B COMPLEX
     Indication: DETOXIFICATION
     Dosage: UNK
     Route: 065
  5. QUETIAPINE FUMARATE. [Suspect]
     Active Substance: QUETIAPINE FUMARATE
     Indication: IMPULSE-CONTROL DISORDER
     Dosage: 100 MG, QD
     Route: 065
  6. NALTRAXONE [Concomitant]
     Active Substance: NALTREXONE
     Indication: PANIC DISORDER
     Dosage: UNK
     Route: 065
  7. DIAZEPAM. [Concomitant]
     Active Substance: DIAZEPAM
     Indication: DETOXIFICATION
     Dosage: UNK
     Route: 065
  8. FOLIC ACID. [Concomitant]
     Active Substance: FOLIC ACID
     Indication: DETOXIFICATION
     Dosage: UNK
     Route: 065

REACTIONS (6)
  - Drug abuse [Unknown]
  - Insomnia [Unknown]
  - Overdose [Unknown]
  - Dysphoria [Unknown]
  - Anxiety [Unknown]
  - Withdrawal syndrome [Unknown]
